FAERS Safety Report 10213428 (Version 2)
Quarter: 2014Q2

REPORT INFORMATION
  Report Type: Spontaneous
  Country: GB (occurrence: None)
  Receive Date: 20140529
  Receipt Date: 20140602
  Transmission Date: 20141212
  Serious: Yes (Hospitalization, Other)
  Sender: FDA-Public Use
  Company Number: KAD201405-000547

PATIENT
  Age: 55 Year
  Sex: Female

DRUGS (10)
  1. RIBAVIRIN [Suspect]
     Indication: HEPATITIS C
     Dates: start: 20130823
  2. PEGINTERFERON ALFA-2B (PEGINTERFERON ALFA-2B) [Suspect]
     Indication: HEPATITIS C
     Dates: start: 20130823
  3. INCIVIO (TELAPREVIR) [Suspect]
     Indication: HEPATITIS C
     Route: 048
     Dates: start: 20130823
  4. AMITRIPTYLINE (AMITRIPTYLINE) [Concomitant]
  5. CALCICHEW [Concomitant]
  6. LANSOPRAZOLE (LANSOPRAZOLE) [Concomitant]
  7. NICOTINE (NICOTINE) [Concomitant]
  8. NIFEDIPINE [Concomitant]
  9. TRAMADOL (TRAMADOL) [Concomitant]
  10. BOCEPREVIR (SCH 503034) [Concomitant]

REACTIONS (5)
  - Renal failure acute [None]
  - Anaemia [None]
  - Hepatocellular carcinoma [None]
  - Nausea [None]
  - Vomiting [None]
